FAERS Safety Report 6374808-X (Version None)
Quarter: 2009Q3

REPORT INFORMATION
  Report Type: 
  Country: None (occurrence: None)
  Receive Date: 20090924
  Receipt Date: 20090914
  Transmission Date: 20100115
  Serious: Yes (Life-Threatening, Hospitalization, Disabling)
  Sender: FDA-Public Use
  Company Number: DE-JNJFOC-20090107048

PATIENT
  Age: 76 Year
  Sex: Female

DRUGS (12)
  1. INFLIXIMAB [Suspect]
     Route: 042
     Dates: start: 20050901, end: 20071101
  2. INFLIXIMAB [Suspect]
     Route: 042
     Dates: start: 20050901, end: 20071101
  3. INFLIXIMAB [Suspect]
     Indication: RHEUMATOID ARTHRITIS
     Route: 042
     Dates: start: 20050901, end: 20071101
  4. METHOTREXATE [Concomitant]
     Indication: RHEUMATOID ARTHRITIS
  5. PREDNISOLONE [Concomitant]
  6. PREDNISOLONE [Concomitant]
     Indication: RHEUMATOID ARTHRITIS
  7. TRAMUNDIN RETARD [Concomitant]
  8. VIGANTOLETTEN [Concomitant]
     Dosage: 1000
  9. CALCIUM [Concomitant]
  10. CIMETIDINE [Concomitant]
  11. RAMIPRIL [Concomitant]
  12. THYRONAJOD [Concomitant]
     Dosage: 50 YG

REACTIONS (1)
  - HYPOPHARYNGEAL CANCER [None]
